FAERS Safety Report 13486442 (Version 1)
Quarter: 2017Q2

REPORT INFORMATION
  Report Type: Report from Study
  Country: None (occurrence: US)
  Receive Date: 20170426
  Receipt Date: 20170426
  Transmission Date: 20170830
  Serious: Yes (Other)
  Sender: FDA-Public Use
  Company Number: US-EISAI MEDICAL RESEARCH-EC-2017-025364

PATIENT
  Age: 66 Year
  Sex: Male
  Weight: 82.5 kg

DRUGS (3)
  1. LAXATIVE [Concomitant]
     Active Substance: UNSPECIFIED INGREDIENT
  2. LENVIMA [Suspect]
     Active Substance: LENVATINIB
     Indication: RENAL CANCER
     Route: 048
     Dates: start: 20170216, end: 20170328
  3. AFINITOR [Suspect]
     Active Substance: EVEROLIMUS
     Indication: RENAL CANCER
     Route: 048
     Dates: start: 20170216, end: 20170408

REACTIONS (16)
  - Pallor [Not Recovered/Not Resolved]
  - Mucosal inflammation [Not Recovered/Not Resolved]
  - Cognitive disorder [Not Recovered/Not Resolved]
  - Diarrhoea [Not Recovered/Not Resolved]
  - Fatigue [Not Recovered/Not Resolved]
  - Balance disorder [Not Recovered/Not Resolved]
  - Asthenia [Not Recovered/Not Resolved]
  - Nausea [Unknown]
  - Dysphonia [Unknown]
  - Weight decreased [Unknown]
  - Feeling abnormal [Not Recovered/Not Resolved]
  - Dyspnoea [Unknown]
  - Decreased appetite [Unknown]
  - Blood thyroid stimulating hormone increased [Recovering/Resolving]
  - Vomiting [Unknown]
  - Palmar-plantar erythrodysaesthesia syndrome [Unknown]

NARRATIVE: CASE EVENT DATE: 2017
